FAERS Safety Report 9382269 (Version 1)
Quarter: 2013Q3

REPORT INFORMATION
  Report Type: Spontaneous
  Country: US (occurrence: None)
  Receive Date: 20130702
  Receipt Date: 20130702
  Transmission Date: 20140515
  Serious: No
  Sender: FDA-Public Use
  Company Number: None

PATIENT
  Age: 35 Year
  Sex: Male
  Weight: 69.4 kg

DRUGS (1)
  1. GAMUNEX [Suspect]
     Dates: start: 20130510

REACTIONS (3)
  - Headache [None]
  - Back pain [None]
  - Myalgia [None]
